FAERS Safety Report 5098369-0 (Version None)
Quarter: 2006Q3

REPORT INFORMATION
  Report Type: 
  Country: None (occurrence: None)
  Receive Date: 20060906
  Receipt Date: 20060327
  Transmission Date: 20061208
  Serious: Yes (Hospitalization)
  Sender: FDA-Public Use
  Company Number: US-AVENTIS-200613023US

PATIENT
  Sex: Female
  Weight: 83.18 kg

DRUGS (14)
  1. LANTUS [Suspect]
     Indication: DIABETES MELLITUS
     Dosage: DOSE: UNK
  2. LANTUS [Suspect]
  3. LANTUS [Suspect]
     Dosage: DOSE: UNK
  4. OPTICLIK (INSULIN INJECTION PEN) [Suspect]
     Indication: DIABETES MELLITUS
  5. ISOSORBIDE DINITRATE [Concomitant]
     Dosage: DOSE: UNK
  6. FOLTX [Concomitant]
     Dosage: DOSE: UNK
  7. FUROSEMIDE [Concomitant]
     Dosage: DOSE: UNK
  8. EFFEXOR [Concomitant]
     Dosage: DOSE: UNK
  9. BENICAR                                 /USA/ [Concomitant]
     Dosage: DOSE: UNK
  10. IBUPROFEN [Concomitant]
     Dosage: DOSE: UNK
  11. SERUMLIPIDREDUCING AGENTS [Concomitant]
     Dosage: DOSE: UNK
  12. TOPROL-XL [Concomitant]
     Dosage: DOSE: UNK
  13. ACTONEL [Concomitant]
     Dosage: DOSE: UNK
  14. NITROGLYCERIN [Concomitant]
     Dosage: DOSE: UNK

REACTIONS (4)
  - BLOOD GLUCOSE INCREASED [None]
  - CEREBROVASCULAR ACCIDENT [None]
  - DEVICE LEAKAGE [None]
  - MYOCARDIAL INFARCTION [None]
